FAERS Safety Report 6141335-4 (Version None)
Quarter: 2009Q2

REPORT INFORMATION
  Report Type: 
  Country: None (occurrence: None)
  Receive Date: 20090402
  Receipt Date: 20090325
  Transmission Date: 20091009
  Serious: Yes (Hospitalization)
  Sender: FDA-Public Use
  Company Number: CN-ROCHE-622120

PATIENT
  Sex: Male
  Weight: 49.2 kg

DRUGS (4)
  1. CAPECITABINE [Suspect]
     Dosage: DATE OF LAST DOSE PRIOR TO SAE: 25 JAN.09,PATIENT RECEIVED CAPECITABINE FOR 2 WEEKS OF 3 WEEKS CYCLE
     Route: 048
     Dates: start: 20081201
  2. CAPECITABINE [Suspect]
     Dosage: FREQUENCY: D1 TO 14
     Route: 048
  3. CISPLATIN [Suspect]
     Dosage: DATE OF LAST DOSE PRIOR TO SAE: 26 FEB.09,DOSE FORM:IV INFUSION, FREQ.REPORTED:3 WEEKS, 5 CYCLES
     Route: 042
     Dates: start: 20081201
  4. CISPLATIN [Suspect]
     Route: 042

REACTIONS (2)
  - MUCOSAL INFLAMMATION [None]
  - RENAL IMPAIRMENT [None]
